FAERS Safety Report 8854508 (Version 1)
Quarter: 2012Q4

REPORT INFORMATION
  Report Type: 
  Country: HR (occurrence: HR)
  Receive Date: 20121023
  Receipt Date: 20121023
  Transmission Date: 20130627
  Serious: Yes (Other)
  Sender: FDA-Public Use
  Company Number: HR-PFIZER INC-2012260322

PATIENT
  Age: 55 Year
  Sex: Female

DRUGS (5)
  1. MEDROL [Suspect]
     Indication: INTERSTITIAL LUNG DISEASE
     Dosage: 24 mg, 1x/day
     Route: 048
     Dates: start: 201110, end: 201204
  2. MEDROL [Suspect]
     Dosage: 24 mg, 1x/day
     Route: 048
     Dates: start: 201206
  3. CONTROLOC [Concomitant]
     Indication: GASTRITIS
     Dosage: 1 DF, 1x/day
     Route: 048
     Dates: start: 20120628
  4. LEXAURIN [Concomitant]
     Indication: ANXIETY DISORDER
     Dosage: 1 DF, 1x/day
     Route: 048
     Dates: start: 20120628
  5. FURSEMID [Concomitant]
     Indication: OEDEMA
     Dosage: 20 mg, as needed
     Route: 048
     Dates: start: 20120628

REACTIONS (21)
  - Cushing^s syndrome [Not Recovered/Not Resolved]
  - Chest discomfort [Not Recovered/Not Resolved]
  - Dyspnoea [Not Recovered/Not Resolved]
  - Swelling face [Not Recovered/Not Resolved]
  - Oedema peripheral [Not Recovered/Not Resolved]
  - Fluid retention [Not Recovered/Not Resolved]
  - Local swelling [Not Recovered/Not Resolved]
  - Myopathy [Not Recovered/Not Resolved]
  - Tremor [Not Recovered/Not Resolved]
  - Blood lactate dehydrogenase increased [Not Recovered/Not Resolved]
  - Alanine aminotransferase increased [Not Recovered/Not Resolved]
  - White blood cell count decreased [Not Recovered/Not Resolved]
  - Gait disturbance [Not Recovered/Not Resolved]
  - Tension [Not Recovered/Not Resolved]
  - Agitation [Not Recovered/Not Resolved]
  - Logorrhoea [Not Recovered/Not Resolved]
  - Insomnia [Not Recovered/Not Resolved]
  - Dyspepsia [Not Recovered/Not Resolved]
  - Flatulence [Not Recovered/Not Resolved]
  - Hyperhidrosis [Not Recovered/Not Resolved]
  - Fatigue [Not Recovered/Not Resolved]
